FAERS Safety Report 4614276-9 (Version None)
Quarter: 2005Q1

REPORT INFORMATION
  Report Type: 
  Country: None (occurrence: None)
  Receive Date: 20050315
  Receipt Date: 20050301
  Transmission Date: 20050727
  Serious: Yes (Death)
  Sender: FDA-Public Use
  Company Number: F01200500276

PATIENT
  Age: 68 Year
  Sex: Male

DRUGS (2)
  1. (OXALIPLATIN) - SOLUTION - 100 MG/M2 [Suspect]
     Indication: BILE DUCT CANCER
     Dosage: 190 MG (100 MG/M2 OVER 2 HOURS IV INFUSION ON DAY 2, Q2W) INTRAVENOUS NOS
     Route: 042
     Dates: start: 20050211, end: 20050211
  2. GEMCITABINE - SOLUTION - 1000 MG/M2 [Suspect]
     Dosage: 1900 MG (1000 MG/M2 OVER 100 MINUTES IV INFUSION ON DAY 1, Q2W) INTRAVENOUS NOS
     Route: 042
     Dates: start: 20050210, end: 20050210

REACTIONS (13)
  - ASCITES [None]
  - BLOOD PRESSURE SYSTOLIC DECREASED [None]
  - DIARRHOEA [None]
  - DISEASE PROGRESSION [None]
  - DYSPNOEA [None]
  - EPIGASTRIC DISCOMFORT [None]
  - GENERAL PHYSICAL HEALTH DETERIORATION [None]
  - HAEMOGLOBIN DECREASED [None]
  - LOSS OF CONSCIOUSNESS [None]
  - NAUSEA [None]
  - ORAL INTAKE REDUCED [None]
  - THERAPY NON-RESPONDER [None]
  - VOMITING [None]
